FAERS Safety Report 18306468 (Version 1)
Quarter: 2020Q3

REPORT INFORMATION
  Report Type: Report from Study
  Country: GB (occurrence: GB)
  Receive Date: 20200924
  Receipt Date: 20200924
  Transmission Date: 20201103
  Serious: Yes (Hospitalization, Other)
  Sender: FDA-Public Use
  Company Number: GB-EMD SERONO-9187445

PATIENT
  Age: 63 Year
  Sex: Female

DRUGS (1)
  1. REBIF [Suspect]
     Active Substance: INTERFERON BETA-1A
     Indication: MULTIPLE SCLEROSIS
     Dosage: CARTRIDGES, 6MIU
     Route: 058

REACTIONS (5)
  - Diarrhoea [Unknown]
  - Bladder catheterisation [Unknown]
  - Device related infection [Unknown]
  - Mobility decreased [Unknown]
  - Psoriasis [Unknown]
